FAERS Safety Report 24988233 (Version 1)
Quarter: 2025Q1

REPORT INFORMATION
  Report Type: Spontaneous
  Country: US (occurrence: US)
  Receive Date: 20250220
  Receipt Date: 20250220
  Transmission Date: 20250408
  Serious: No
  Sender: MANKIND PHARMA
  Company Number: US-MankindUS-000279

PATIENT
  Sex: Male

DRUGS (1)
  1. VARENICLINE TARTRATE [Suspect]
     Active Substance: VARENICLINE TARTRATE
     Indication: Product used for unknown indication
     Dosage: STRENGTH: 0.5 MG AND 1 MG?DOSE REGIMEN: ONCE A DAY
     Route: 048

REACTIONS (1)
  - Off label use [Unknown]
